FAERS Safety Report 21180383 (Version 1)
Quarter: 2022Q3

REPORT INFORMATION
  Report Type: Spontaneous
  Country: US (occurrence: US)
  Receive Date: 20220806
  Receipt Date: 20220806
  Transmission Date: 20221026
  Serious: Yes (Other)
  Sender: FDA-Public Use
  Company Number: US-AUROBINDO-AUR-APL-2022-030961

PATIENT
  Age: 78 Year
  Sex: Female

DRUGS (2)
  1. MELATONIN [Suspect]
     Active Substance: MELATONIN
     Indication: Rapid eye movement sleep behaviour disorder
     Dosage: 5 MILLIGRAM
     Route: 065
  2. MELATONIN [Suspect]
     Active Substance: MELATONIN
     Dosage: TITRATED OVER A MONTH UP TO 10 AND 15MG
     Route: 065

REACTIONS (1)
  - Autoimmune hepatitis [Recovered/Resolved]
